FAERS Safety Report 11115194 (Version 1)
Quarter: 2015Q2

REPORT INFORMATION
  Report Type: Spontaneous
  Country: US (occurrence: None)
  Receive Date: 20150513
  Receipt Date: 20150513
  Transmission Date: 20150821
  Serious: Yes (Hospitalization)
  Sender: FDA-Public Use
  Company Number: ADVERSE EVENT #448720

PATIENT
  Age: 4 Year
  Sex: Male
  Weight: 19.05 kg

DRUGS (1)
  1. DIPHENHYDRAMINE HYDROCHLORIDE. [Suspect]
     Active Substance: DIPHENHYDRAMINE HYDROCHLORIDE
     Dates: start: 20140806, end: 20140806

REACTIONS (6)
  - Accidental exposure to product by child [None]
  - Hallucination [None]
  - Seizure [None]
  - Failure of child resistant mechanism for pharmaceutical product [None]
  - Accidental overdose [None]
  - Impaired work ability [None]

NARRATIVE: CASE EVENT DATE: 20140806
